FAERS Safety Report 9222049 (Version 1)
Quarter: 2013Q2

REPORT INFORMATION
  Report Type: Spontaneous
  Country: US (occurrence: US)
  Receive Date: 20130410
  Receipt Date: 20130410
  Transmission Date: 20140414
  Serious: No
  Sender: FDA-Public Use
  Company Number: US-PFIZER INC-2013112809

PATIENT
  Age: 74 Year
  Sex: Female
  Weight: 68.48 kg

DRUGS (5)
  1. RAMIPRIL [Suspect]
     Indication: BLOOD PRESSURE
     Dosage: 25 MILLIGRAM, AT BEDTIME
     Route: 048
     Dates: start: 200907
  2. CRESTOR [Suspect]
     Dosage: 40 MG, DAILY
     Route: 048
     Dates: start: 200907
  3. ASPIRIN [Concomitant]
     Dosage: UNK
     Dates: start: 200906
  4. CARVEDILOL [Concomitant]
     Dosage: UNK
  5. CLOPIDOGREL [Concomitant]
     Indication: VASCULAR GRAFT
     Dosage: UNK
     Dates: start: 200907

REACTIONS (5)
  - Impaired fasting glucose [Unknown]
  - Body height decreased [Unknown]
  - Glycosylated haemoglobin increased [Unknown]
  - Dizziness [Unknown]
  - Blood pressure decreased [Unknown]
